FAERS Safety Report 19410576 (Version 4)
Quarter: 2022Q1

REPORT INFORMATION
  Report Type: Spontaneous
  Country: US (occurrence: None)
  Receive Date: 20210614
  Receipt Date: 20220308
  Transmission Date: 20220423
  Serious: Yes (Hospitalization, Other)
  Sender: FDA-Public Use
  Company Number: US-HIKMA PHARMACEUTICALS USA INC.-US-H14001-21-02723

PATIENT
  Age: 15 Year
  Sex: Female
  Weight: 166.3 kg

DRUGS (9)
  1. PREDNISONE [Suspect]
     Active Substance: PREDNISONE
     Indication: Acute lymphocytic leukaemia
     Dosage: AM
     Route: 048
     Dates: start: 20210104, end: 20210208
  2. PREDNISONE [Suspect]
     Active Substance: PREDNISONE
     Dosage: PM
     Route: 048
     Dates: start: 20210104, end: 20210208
  3. PREDNISONE [Suspect]
     Active Substance: PREDNISONE
     Dosage: IN EVENING
     Route: 048
     Dates: start: 20210104, end: 20210208
  4. MERCAPTOPURINE [Suspect]
     Active Substance: MERCAPTOPURINE
     Indication: Acute lymphocytic leukaemia
     Dosage: MONDAY-FRIDAY
     Route: 048
     Dates: start: 20210208
  5. MERCAPTOPURINE [Suspect]
     Active Substance: MERCAPTOPURINE
     Dosage: SATURDAY-SUNDAY
     Route: 048
     Dates: start: 20210208
  6. METHOTREXATE [Suspect]
     Active Substance: METHOTREXATE
     Indication: Acute lymphocytic leukaemia
     Route: 048
     Dates: start: 20210215
  7. RUXOLITINIB [Suspect]
     Active Substance: RUXOLITINIB
     Indication: Acute lymphocytic leukaemia
     Route: 048
     Dates: start: 20190408
  8. VINCRISTINE [Suspect]
     Active Substance: VINCRISTINE
     Indication: Acute lymphocytic leukaemia
     Dosage: PER TREATMENT PLAN
     Route: 042
     Dates: start: 20191216
  9. ACETAMINOPHEN [Concomitant]
     Active Substance: ACETAMINOPHEN
     Indication: Product used for unknown indication
     Dosage: UNKNOWN
     Route: 065
     Dates: start: 20190502

REACTIONS (2)
  - Osteonecrosis [Recovering/Resolving]
  - Arthralgia [Recovering/Resolving]

NARRATIVE: CASE EVENT DATE: 20210208
